FAERS Safety Report 8589439-0 (Version None)
Quarter: 2012Q3

REPORT INFORMATION
  Report Type: 
  Country: None (occurrence: None)
  Receive Date: 20120813
  Receipt Date: 20120807
  Transmission Date: 20120928
  Serious: Yes (Death)
  Sender: FDA-Public Use
  Company Number: CA-AMGEN-CANSP2011055778

PATIENT
  Age: 50 Year
  Sex: Male

DRUGS (9)
  1. OXYCODONE [Suspect]
     Dosage: UNK
  2. TEMAZEPAM [Suspect]
     Dosage: 50 MG, 2 TIMES/WK
     Route: 058
  3. AMITRIPTYLINE HCL [Suspect]
     Dosage: UNK
  4. OXAZEPAM [Suspect]
     Dosage: UNK
  5. ALPRAZOLAM [Suspect]
     Dosage: UNK
  6. ENBREL [Suspect]
     Indication: PRODUCT USED FOR UNKNOWN INDICATION
     Dosage: 50 MG, 2 TIMES/WK
     Route: 058
  7. ETHANOL [Suspect]
     Dosage: UNK
  8. NORTRIPTYLINE [Suspect]
     Dosage: UNK
  9. CITALOPRAM [Suspect]
     Dosage: UNK

REACTIONS (1)
  - TOXICITY TO VARIOUS AGENTS [None]
